FAERS Safety Report 7237609-6 (Version None)
Quarter: 2011Q1

REPORT INFORMATION
  Report Type: 
  Country: None (occurrence: None)
  Receive Date: 20110121
  Receipt Date: 20110111
  Transmission Date: 20110831
  Serious: Yes (Other)
  Sender: FDA-Public Use
  Company Number: PHHY2010US68322

PATIENT
  Age: 20 Year
  Sex: Female

DRUGS (1)
  1. FANAPT [Suspect]
     Dosage: 6 MG, BID
     Route: 048

REACTIONS (2)
  - CONVULSION [None]
  - URTICARIA [None]
